FAERS Safety Report 5626104-3 (Version None)
Quarter: 2008Q1

REPORT INFORMATION
  Report Type: 
  Country: None (occurrence: None)
  Receive Date: 20080214
  Receipt Date: 20080130
  Transmission Date: 20080703
  Serious: Yes (Death, Hospitalization)
  Sender: FDA-Public Use
  Company Number: DE-AMGEN-UK257219

PATIENT
  Sex: Female
  Weight: 79 kg

DRUGS (14)
  1. KINERET [Suspect]
     Indication: POLYARTHRITIS
     Route: 065
     Dates: start: 20020501, end: 20031101
  2. PREDNISOLONE [Concomitant]
     Route: 065
  3. DICLOFENAC [Concomitant]
     Route: 065
  4. DIGITOXIN INJ [Concomitant]
     Route: 065
  5. PANTOZOL [Concomitant]
     Route: 065
  6. BELOC ZOK [Concomitant]
     Route: 065
  7. MARCUMAR [Concomitant]
     Route: 065
  8. CLEXANE [Concomitant]
     Route: 065
  9. DURAGESIC-100 [Concomitant]
     Route: 065
     Dates: end: 20070502
  10. HYDROXYCARBAMIDE [Concomitant]
     Route: 065
  11. DELIX [Concomitant]
     Route: 065
  12. TOREM [Concomitant]
     Route: 065
  13. ALLOPURINOL [Concomitant]
     Route: 065
  14. METHOTREXATE [Concomitant]
     Dates: start: 19950101

REACTIONS (7)
  - ARRHYTHMIA SUPRAVENTRICULAR [None]
  - ATRIAL FIBRILLATION [None]
  - CARDIAC VALVE REPLACEMENT COMPLICATION [None]
  - DYSPNOEA [None]
  - MITRAL VALVE INCOMPETENCE [None]
  - PYREXIA [None]
  - RHEUMATOID ARTHRITIS [None]
